FAERS Safety Report 4394152-X (Version None)
Quarter: 2004Q3

REPORT INFORMATION
  Report Type: 
  Country: None (occurrence: None)
  Receive Date: 20040708
  Receipt Date: 20040708
  Transmission Date: 20050211
  Serious: Yes (Hospitalization)
  Sender: FDA-Public Use
  Company Number: None

PATIENT
  Age: 71 Year
  Sex: Male
  Weight: 103 kg

DRUGS (5)
  1. GEMZAR [Suspect]
     Dosage: 1,200 MG IV
     Route: 042
     Dates: start: 20040621
  2. ZITHROMAX [Concomitant]
  3. ELAVIL [Concomitant]
  4. SUDAFED S.A. [Concomitant]
  5. LANTUS [Concomitant]

REACTIONS (4)
  - ASTHENIA [None]
  - BEDRIDDEN [None]
  - CONFUSIONAL STATE [None]
  - DELIRIUM [None]
